FAERS Safety Report 17447667 (Version 1)
Quarter: 2020Q1

REPORT INFORMATION
  Report Type: Spontaneous
  Country: NZ (occurrence: NZ)
  Receive Date: 20200221
  Receipt Date: 20200221
  Transmission Date: 20200409
  Serious: Yes (Hospitalization)
  Sender: FDA-Public Use
  Company Number: NZ-BAUSCH-BL-2020-005715

PATIENT
  Age: 64 Year
  Sex: Female
  Weight: 52 kg

DRUGS (2)
  1. ACYCLOVIR. [Suspect]
     Active Substance: ACYCLOVIR
     Indication: HERPES ZOSTER
     Dosage: BRINGING 250 MG TOTAL INTRAVENOUSLY IN JUST OVER 24 HOURS; 5 MG/KG
     Route: 042
  2. ACYCLOVIR. [Suspect]
     Active Substance: ACYCLOVIR
     Indication: HERPES ZOSTER
     Dosage: THE TOTAL DOSE TO 4800 MG ORALLY
     Route: 048

REACTIONS (1)
  - Neurotoxicity [Recovered/Resolved]
